FAERS Safety Report 8135482-5 (Version None)
Quarter: 2012Q1

REPORT INFORMATION
  Report Type: 
  Country: None (occurrence: None)
  Receive Date: 20120214
  Receipt Date: 20120130
  Transmission Date: 20120608
  Serious: Yes (Hospitalization)
  Sender: FDA-Public Use
  Company Number: FR-ROCHE-790015

PATIENT
  Sex: Female
  Weight: 62 kg

DRUGS (20)
  1. MABTHERA [Suspect]
     Indication: MANTLE CELL LYMPHOMA
     Dosage: CYCLE 1
     Route: 041
  2. DEXAMETHASONE [Suspect]
     Indication: MANTLE CELL LYMPHOMA
     Route: 041
     Dates: start: 20110616, end: 20110619
  3. CYTARABINE [Suspect]
     Indication: MANTLE CELL LYMPHOMA
     Route: 041
     Dates: start: 20110616, end: 20110616
  4. MELPHALAN HYDROCHLORIDE [Suspect]
     Indication: MANTLE CELL LYMPHOMA
     Route: 065
  5. PARACETAMOL [Concomitant]
     Indication: PAIN
     Route: 048
  6. MABTHERA [Suspect]
     Dosage: CYCLE 2
     Route: 041
  7. CISPLATIN [Suspect]
     Indication: MANTLE CELL LYMPHOMA
     Dosage: DOSE: 165
     Route: 041
     Dates: start: 20110616, end: 20110616
  8. CYTARABINE [Suspect]
     Route: 041
     Dates: start: 20110802, end: 20110806
  9. ETOPOSIDE [Suspect]
     Indication: MANTLE CELL LYMPHOMA
     Route: 065
  10. VALACYCLOVIR HYDROCHLORIDE [Concomitant]
     Indication: ANTIVIRAL PROPHYLAXIS
     Route: 048
  11. DOMPERIDONE [Concomitant]
     Indication: VOMITING
     Route: 048
  12. DEXAMETHASONE [Suspect]
     Dosage: REDUSED DOSE 75%.
     Route: 041
     Dates: start: 20110802, end: 20110805
  13. LEVOTHYROXINE SODIUM [Concomitant]
     Indication: HYPOTHYROIDISM
     Dosage: DRUG: LEVOTHYROXINE SODIUM
     Route: 048
  14. CARMUSTINE [Suspect]
     Indication: MANTLE CELL LYMPHOMA
     Route: 065
  15. NEULASTA [Concomitant]
     Route: 058
     Dates: start: 20110620, end: 20110620
  16. NEXIUM [Concomitant]
     Indication: GASTROOESOPHAGEAL REFLUX DISEASE
     Route: 048
  17. DUPHALAC [Concomitant]
     Indication: CONSTIPATION
     Route: 048
  18. CISPLATIN [Suspect]
     Dosage: REDUSED DOSE 75%.
     Route: 041
     Dates: start: 20110802, end: 20110802
  19. MABTHERA [Suspect]
     Route: 041
     Dates: start: 20110802, end: 20110802
  20. METHOTREXATE [Suspect]
     Indication: PRODUCT USED FOR UNKNOWN INDICATION
     Route: 037
     Dates: start: 20110615, end: 20110615

REACTIONS (3)
  - VAGINAL INFECTION [None]
  - FEBRILE BONE MARROW APLASIA [None]
  - DIARRHOEA [None]
